FAERS Safety Report 4910333-8 (Version None)
Quarter: 2006Q1

REPORT INFORMATION
  Report Type: 
  Country: None (occurrence: None)
  Receive Date: 20060213
  Receipt Date: 20050823
  Transmission Date: 20060701
  Serious: Yes (Other)
  Sender: FDA-Public Use
  Company Number: US-MERCK-0508USA03921

PATIENT
  Age: 61 Year
  Sex: Male
  Weight: 109 kg

DRUGS (19)
  1. VIOXX [Suspect]
     Indication: ARTHRITIS
     Route: 048
     Dates: start: 20000504, end: 20040930
  2. LEVAQUIN [Concomitant]
     Route: 065
  3. CEPHALEXIN [Concomitant]
     Route: 065
  4. FUROSEMIDE [Concomitant]
     Route: 065
  5. POTASSIUM CHLORIDE [Concomitant]
     Route: 065
  6. ATENOLOL [Concomitant]
     Route: 065
  7. PROPOXYPHENE NAPSYLATE [Concomitant]
     Route: 065
  8. DIGITEK [Concomitant]
     Route: 065
  9. COMBIVENT [Concomitant]
     Route: 065
  10. FLOVENT [Concomitant]
     Route: 065
  11. ASPIRIN [Concomitant]
     Route: 065
  12. DICLOXACILLIN SODIUM [Concomitant]
     Route: 065
  13. DOXYCYCLINE HYCLATE [Concomitant]
     Route: 065
  14. DEMADEX [Concomitant]
     Route: 065
  15. BECONASE [Concomitant]
     Route: 065
  16. GUAIFENESIN [Concomitant]
     Route: 065
  17. VIAGRA [Concomitant]
     Route: 065
  18. EFUDEX [Concomitant]
     Route: 065
  19. TORSEMIDE [Concomitant]
     Route: 065

REACTIONS (4)
  - ABDOMINAL PAIN UPPER [None]
  - JOINT SWELLING [None]
  - MYOCARDIAL INFARCTION [None]
  - SLEEP APNOEA SYNDROME [None]
